FAERS Safety Report 5524800-X (Version None)
Quarter: 2007Q4

REPORT INFORMATION
  Report Type: 
  Country: None (occurrence: None)
  Receive Date: 20071116
  Receipt Date: 20071106
  Transmission Date: 20080405
  Serious: No
  Sender: FDA-Public Use
  Company Number: 2007-167100-NL

PATIENT
  Age: 37 Year
  Sex: Female

DRUGS (4)
  1. ETONOGESTREL       (BATCH #: 112007/175644) [Suspect]
     Indication: CONTRACEPTION
     Dosage: DF SUBCUTANEOUS
     Route: 058
     Dates: start: 20070910, end: 20071015
  2. BECLOMETHASONE DIPROPIONATE [Concomitant]
  3. CITALOPRAM [Concomitant]
  4. ALBUTEROL [Concomitant]

REACTIONS (2)
  - AGGRESSION [None]
  - MOOD ALTERED [None]
